FAERS Safety Report 5553798-3 (Version None)
Quarter: 2007Q4

REPORT INFORMATION
  Report Type: 
  Country: None (occurrence: None)
  Receive Date: 20071213
  Receipt Date: 20071206
  Transmission Date: 20080405
  Serious: Yes (Other)
  Sender: FDA-Public Use
  Company Number: US-ELI_LILLY_AND_COMPANY-US200712001191

PATIENT
  Age: 84 Year
  Sex: Male

DRUGS (12)
  1. HUMALOG [Suspect]
     Dates: start: 19970101
  2. HUMULIN N [Suspect]
     Dates: start: 19970101
  3. COUMADIN [Concomitant]
  4. DIOVAN [Concomitant]
  5. COREG [Concomitant]
  6. FUROSEMIDE [Concomitant]
  7. DIGITEK [Concomitant]
  8. DOXAZOSIN MESYLATE [Concomitant]
  9. LIPITOR [Concomitant]
  10. GEMFIBROZIL [Concomitant]
  11. POTASSIUM CHLORIDE [Concomitant]
  12. FISH OIL [Concomitant]

REACTIONS (3)
  - BLOOD GLUCOSE FLUCTUATION [None]
  - INSULIN RESISTANCE [None]
  - MESOTHELIOMA [None]
